FAERS Safety Report 16673917 (Version 4)
Quarter: 2020Q1

REPORT INFORMATION
  Report Type: Spontaneous
  Country: US (occurrence: US)
  Receive Date: 20190806
  Receipt Date: 20200221
  Transmission Date: 20200409
  Serious: No
  Sender: FDA-Public Use
  Company Number: US-TEVA-2019-US-1086039

PATIENT
  Age: 87 Year
  Sex: Female

DRUGS (1)
  1. BUPRENORPHINE. [Suspect]
     Active Substance: BUPRENORPHINE
     Indication: BACK PAIN
     Dosage: DOSE STRENGTH:  10 MCG/HR
     Route: 062
     Dates: start: 20190721

REACTIONS (16)
  - Faeces discoloured [Unknown]
  - Erythema [Unknown]
  - Swelling face [Unknown]
  - Agitation [Unknown]
  - Musculoskeletal stiffness [Unknown]
  - Feeling abnormal [Unknown]
  - Therapeutic product effect incomplete [Unknown]
  - Disturbance in attention [Unknown]
  - Abdominal pain upper [Unknown]
  - Constipation [Unknown]
  - Peripheral swelling [Unknown]
  - Skin induration [Unknown]
  - Dyspnoea [Unknown]
  - Lip swelling [Unknown]
  - Nausea [Unknown]
  - Skin tightness [Unknown]
